FAERS Safety Report 9422409 (Version 1)
Quarter: 2013Q3

REPORT INFORMATION
  Report Type: Spontaneous
  Country: US (occurrence: None)
  Receive Date: 20130723
  Receipt Date: 20130723
  Transmission Date: 20140515
  Serious: Yes (Hospitalization)
  Sender: FDA-Public Use
  Company Number: LMI-2013-00224

PATIENT
  Age: 73 Year
  Sex: Male
  Weight: 102.51 kg

DRUGS (4)
  1. DEFINITY [Suspect]
     Indication: ECHOCARDIOGRAM
     Route: 040
     Dates: start: 20130523, end: 20130523
  2. COUMADIN (WARFARIN SODIUM) [Concomitant]
  3. AMIODARONE (AMIODARONE) [Concomitant]
  4. LASIX (FUROSEMIDE) [Concomitant]

REACTIONS (7)
  - Presyncope [None]
  - Hypotension [None]
  - Dizziness [None]
  - Posture abnormal [None]
  - Hypothyroidism [None]
  - Hypokalaemia [None]
  - Dehydration [None]
